FAERS Safety Report 7086947-9 (Version None)
Quarter: 2010Q4

REPORT INFORMATION
  Report Type: 
  Country: None (occurrence: None)
  Receive Date: 20101106
  Receipt Date: 20101001
  Transmission Date: 20110411
  Serious: No
  Sender: FDA-Public Use
  Company Number: US-WYE-H17952310

PATIENT
  Age: 56 Year
  Sex: Female
  Weight: 72.64 kg

DRUGS (2)
  1. ADVIL COLD AND SINUS [Suspect]
     Indication: SINUS HEADACHE
     Dosage: 1 TABLET, TAKEN TWICE
     Route: 048
     Dates: start: 20100927, end: 20100930
  2. SYNTHROID [Concomitant]

REACTIONS (1)
  - FEELING JITTERY [None]
